FAERS Safety Report 4647152-6 (Version None)
Quarter: 2005Q2

REPORT INFORMATION
  Report Type: 
  Country: None (occurrence: None)
  Receive Date: 20050426
  Receipt Date: 20050415
  Transmission Date: 20051028
  Serious: Yes (Life-Threatening)
  Sender: FDA-Public Use
  Company Number: 2004035732

PATIENT
  Age: 73 Year
  Sex: Female

DRUGS (7)
  1. ZELDOX (CAPSULES) (ZIPRASIDONE) [Suspect]
     Indication: SCHIZOAFFECTIVE DISORDER
     Dosage: 40 MG (20 MG, 2 IN 1 D),ORAL
     Route: 048
     Dates: start: 20040122, end: 20040419
  2. HALOPERIDOL [Concomitant]
  3. AMISULPRIDE (AMISULPRIDE) [Concomitant]
  4. MAPROTILINE HYDROCHLORIDE [Concomitant]
  5. BISOPROLOL FUMARATE [Concomitant]
  6. CILAZAPRIL (CILAZAPRIL) [Concomitant]
  7. PROTHIPENDYL HYDROCHLORIDE (PROTHIPENDYL HYDROCHLORIDE) [Concomitant]

REACTIONS (3)
  - ELECTROCARDIOGRAM ABNORMAL [None]
  - ELECTROCARDIOGRAM QT CORRECTED INTERVAL PROLONGED [None]
  - VENTRICULAR TACHYCARDIA [None]
